FAERS Safety Report 17874034 (Version 2)
Quarter: 2020Q2

REPORT INFORMATION
  Report Type: Spontaneous
  Country: US (occurrence: US)
  Receive Date: 20200609
  Receipt Date: 20200612
  Transmission Date: 20200714
  Serious: Yes (Hospitalization, Other)
  Sender: FDA-Public Use
  Company Number: US-AMGEN-USASP2020088924

PATIENT
  Age: 62 Year
  Sex: Female

DRUGS (1)
  1. ENBREL [Suspect]
     Active Substance: ETANERCEPT
     Indication: RHEUMATOID ARTHRITIS
     Dosage: 50 MG, WEEKLY (50 MG Q 7 DAYS)
     Route: 058

REACTIONS (4)
  - Angioedema [Recovered/Resolved]
  - Off label use [Unknown]
  - Drug eruption [Unknown]
  - Drug hypersensitivity [Recovered/Resolved]
